FAERS Safety Report 13047571 (Version 3)
Quarter: 2017Q1

REPORT INFORMATION
  Report Type: Spontaneous
  Country: CA (occurrence: CA)
  Receive Date: 20161220
  Receipt Date: 20170314
  Transmission Date: 20170428
  Serious: Yes (Other)
  Sender: FDA-Public Use
  Company Number: CA-CELLTRION INC.-2016CA011315

PATIENT
  Age: 64 Year
  Sex: Male
  Weight: 100 kg

DRUGS (39)
  1. INFLECTRA [Suspect]
     Active Substance: INFLIXIMAB-DYYB
     Indication: PSORIATIC ARTHROPATHY
     Dosage: 500 MG, Q 0,2,6 WEEKS, THEN EVERY 8 WEEKS FOR 12 MONTHS
     Route: 041
     Dates: start: 20160314
  2. CLOBETASOL [Concomitant]
     Active Substance: CLOBETASOL
     Dosage: UNK
  3. CLOBETASOL [Concomitant]
     Active Substance: CLOBETASOL
     Dosage: UNK
  4. INFLECTRA [Suspect]
     Active Substance: INFLIXIMAB-DYYB
     Dosage: 500 MG, Q 0,2,6 WEEKS, THEN EVERY 8 WEEKS FOR 12 MONTHS
     Route: 041
     Dates: start: 20160314
  5. INFLECTRA [Suspect]
     Active Substance: INFLIXIMAB-DYYB
     Dosage: 500 MG, CYCLIC Q 0,2,6 WEEKS, THEN EVERY 8 WEEKS FOR 12 MONTHS
     Route: 042
  6. INFLECTRA [Suspect]
     Active Substance: INFLIXIMAB-DYYB
     Dosage: 500 MG, CYCLIC (Q 2,6 WEEKS, THEN EVERY 7 WEEKS FOR 12 MONTHS)
     Route: 042
  7. CLOBEX /00012002/ [Concomitant]
     Active Substance: CLOXACILLIN SODIUM
     Dosage: UNK
     Route: 065
  8. CALCIPOT /00060701/ [Concomitant]
     Dosage: UNK
     Route: 065
  9. CALCIPOT /00060701/ [Concomitant]
     Dosage: UNK
  10. RABEPRAZOLE [Concomitant]
     Active Substance: RABEPRAZOLE
     Dosage: 20 MG
     Route: 065
  11. CLOBEX /00012002/ [Concomitant]
     Active Substance: CLOXACILLIN SODIUM
     Dosage: UNK
  12. NAPRO-A [Concomitant]
     Dosage: 550 MG
     Route: 065
  13. NAPRO-A [Concomitant]
     Dosage: 550 MG
  14. EZETIMIBE. [Concomitant]
     Active Substance: EZETIMIBE
     Dosage: 10 MG
  15. RAMIPRIL. [Concomitant]
     Active Substance: RAMIPRIL
     Dosage: 5 MG
     Route: 065
  16. RAMIPRIL. [Concomitant]
     Active Substance: RAMIPRIL
     Dosage: 5 MG
  17. DOVOBET [Concomitant]
     Active Substance: BETAMETHASONE\CALCIPOTRIENE
     Dosage: UNK
  18. ROSUVASTATIN. [Concomitant]
     Active Substance: ROSUVASTATIN
     Dosage: 20 MG
     Route: 065
  19. ROSUVASTATIN. [Concomitant]
     Active Substance: ROSUVASTATIN
     Dosage: 20 MG
  20. INFLECTRA [Suspect]
     Active Substance: INFLIXIMAB-DYYB
     Dosage: 500 MG, CYCLIC (THEN EVERY 7 WEEKS FOR 12 MONTHS)
     Route: 042
  21. EZETIMIBE. [Concomitant]
     Active Substance: EZETIMIBE
     Dosage: 10 MG
     Route: 065
  22. KETODERM /00532501/ [Concomitant]
     Active Substance: KETOCONAZOLE
     Dosage: UNK
  23. RABEPRAZOLE [Concomitant]
     Active Substance: RABEPRAZOLE
     Dosage: 20 MG
  24. OTEZLA [Concomitant]
     Active Substance: APREMILAST
     Dosage: UNK
  25. INFLECTRA [Suspect]
     Active Substance: INFLIXIMAB-DYYB
     Dosage: 500 MG, CYCLIC (Q 2,6 WEEKS, THEN EVERY 7 WEEKS FOR 12 MONTHS)
     Route: 041
  26. NAPRO-A [Concomitant]
     Dosage: 550 MG
  27. KETODERM /00532501/ [Concomitant]
     Active Substance: KETOCONAZOLE
     Dosage: UNK
     Route: 065
  28. KETODERM /00532501/ [Concomitant]
     Active Substance: KETOCONAZOLE
     Dosage: UNK
  29. RAMIPRIL. [Concomitant]
     Active Substance: RAMIPRIL
     Dosage: 5 MG
  30. INFLECTRA [Suspect]
     Active Substance: INFLIXIMAB-DYYB
     Dosage: 500 MG, CYCLIC Q 0,2,6 WEEKS, THEN EVERY 8 WEEKS FOR 12 MONTHS
     Route: 041
  31. INFLECTRA [Suspect]
     Active Substance: INFLIXIMAB-DYYB
     Dosage: 600 MG, CYCLIC (THEN EVERY 7 WEEKS FOR 12 MONTHS)
     Route: 042
  32. CLOBEX /00012002/ [Concomitant]
     Active Substance: CLOXACILLIN SODIUM
     Dosage: UNK
  33. CALCIPOT /00060701/ [Concomitant]
     Dosage: UNK
  34. CLOBETASOL [Concomitant]
     Active Substance: CLOBETASOL
     Dosage: UNK
     Route: 065
  35. DOVOBET [Concomitant]
     Active Substance: BETAMETHASONE\CALCIPOTRIENE
     Dosage: UNK
     Route: 065
  36. DOVOBET [Concomitant]
     Active Substance: BETAMETHASONE\CALCIPOTRIENE
     Dosage: UNK
  37. EZETIMIBE. [Concomitant]
     Active Substance: EZETIMIBE
     Dosage: 10 MG
  38. RABEPRAZOLE [Concomitant]
     Active Substance: RABEPRAZOLE
     Dosage: 20 MG
  39. ROSUVASTATIN. [Concomitant]
     Active Substance: ROSUVASTATIN
     Dosage: 20 MG

REACTIONS (7)
  - Product use issue [Unknown]
  - Stress [Not Recovered/Not Resolved]
  - Heart rate decreased [Unknown]
  - Blood pressure increased [Unknown]
  - Fatigue [Not Recovered/Not Resolved]
  - Psoriasis [Not Recovered/Not Resolved]
  - Condition aggravated [Unknown]

NARRATIVE: CASE EVENT DATE: 201603
